FAERS Safety Report 6356524-3 (Version None)
Quarter: 2009Q3

REPORT INFORMATION
  Report Type: 
  Country: None (occurrence: None)
  Receive Date: 20090915
  Receipt Date: 20090911
  Transmission Date: 20100115
  Serious: Yes (Disabling)
  Sender: FDA-Public Use
  Company Number: D0062442A

PATIENT
  Sex: Male
  Weight: 83.5 kg

DRUGS (5)
  1. AVANDAMET [Suspect]
     Route: 065
     Dates: start: 20060609
  2. LIPIDIL [Concomitant]
     Indication: LIPID METABOLISM DISORDER
     Route: 065
     Dates: start: 20000901
  3. METFORMIN HCL [Concomitant]
     Route: 065
     Dates: start: 20020901
  4. NIASPAN [Concomitant]
     Indication: LIPID METABOLISM DISORDER
     Route: 065
     Dates: start: 20070901
  5. INEGY [Concomitant]
     Indication: LIPID METABOLISM DISORDER
     Route: 065
     Dates: start: 20041001

REACTIONS (1)
  - PAROTID GLAND ENLARGEMENT [None]
